FAERS Safety Report 25676666 (Version 1)
Quarter: 2025Q3

REPORT INFORMATION
  Report Type: Spontaneous
  Country: EU (occurrence: EU)
  Receive Date: 20250813
  Receipt Date: 20250813
  Transmission Date: 20251020
  Serious: Yes (Disabling)
  Sender: CHEPLAPHARM
  Company Number: EU-CHEPLA-2025009630

PATIENT
  Age: 72 Year
  Sex: Male

DRUGS (6)
  1. QUETIAPINE [Suspect]
     Active Substance: QUETIAPINE
     Indication: Psychomotor hyperactivity
     Dates: start: 2025
  2. QUETIAPINE [Suspect]
     Active Substance: QUETIAPINE
     Indication: Defiant behaviour
     Dates: start: 2025
  3. QUETIAPINE [Suspect]
     Active Substance: QUETIAPINE
     Indication: Sedative therapy
     Dates: start: 2025
  4. BISOPROLOL FUMARATE [Concomitant]
     Active Substance: BISOPROLOL FUMARATE
  5. CARVEDILOL [Concomitant]
     Active Substance: CARVEDILOL
  6. PHOSPHORUS [Concomitant]
     Active Substance: PHOSPHORUS
     Indication: Gastrointestinal disorder

REACTIONS (5)
  - Affect lability [Not Recovered/Not Resolved]
  - Dyskinesia [Not Recovered/Not Resolved]
  - Dysstasia [Not Recovered/Not Resolved]
  - Movement disorder [Not Recovered/Not Resolved]
  - Off label use [Unknown]

NARRATIVE: CASE EVENT DATE: 20250101
